FAERS Safety Report 7399681-2 (Version None)
Quarter: 2011Q2

REPORT INFORMATION
  Report Type: 
  Country: None (occurrence: None)
  Receive Date: 20110407
  Receipt Date: 20110404
  Transmission Date: 20111010
  Serious: Yes (Other)
  Sender: FDA-Public Use
  Company Number: US-PFIZER INC-2011070926

PATIENT
  Sex: Female
  Weight: 56.7 kg

DRUGS (3)
  1. XALEASE [Suspect]
     Dosage: UNK
  2. XALATAN [Suspect]
     Indication: OPEN ANGLE GLAUCOMA
     Dosage: 1 DROP IN EACH EYE
     Route: 047
     Dates: start: 20101201
  3. OXYBUTYNIN [Concomitant]
     Indication: MICTURITION DISORDER
     Dosage: 10 MG DAILY

REACTIONS (2)
  - INTRAOCULAR PRESSURE INCREASED [None]
  - DRUG ADMINISTRATION ERROR [None]
